FAERS Safety Report 21515857 (Version 2)
Quarter: 2022Q4

REPORT INFORMATION
  Report Type: Spontaneous
  Country: CH (occurrence: CH)
  Receive Date: 20221027
  Receipt Date: 20221108
  Transmission Date: 20230113
  Serious: Yes (Life-Threatening, Hospitalization)
  Sender: FDA-Public Use
  Company Number: CH-TEVA-2022-CH-2819424

PATIENT
  Sex: Male
  Weight: 1.15 kg

DRUGS (2)
  1. FENTANYL [Suspect]
     Active Substance: FENTANYL
     Indication: Procedural pain
     Dosage: OVER 40 SECONDS FOLLOWED BY SLOW INFUSION OF A FLUID BOLUS
     Route: 041
  2. MIVACURIUM [Concomitant]
     Active Substance: MIVACURIUM
     Indication: Hypotonia
     Route: 065

REACTIONS (1)
  - Muscle rigidity [Recovering/Resolving]
